FAERS Safety Report 25161563 (Version 2)
Quarter: 2025Q2

REPORT INFORMATION
  Report Type: Report from Study
  Country: ES (occurrence: ES)
  Receive Date: 20250404
  Receipt Date: 20250512
  Transmission Date: 20250717
  Serious: Yes (Other)
  Sender: JOHNSON AND JOHNSON
  Company Number: ES-JNJFOC-20250388175

PATIENT
  Age: 49 Year
  Sex: Male
  Weight: 63 kg

DRUGS (13)
  1. SIMPONI [Suspect]
     Active Substance: GOLIMUMAB
     Indication: Colitis ulcerative
     Route: 058
     Dates: start: 20161128
  2. SIMPONI [Suspect]
     Active Substance: GOLIMUMAB
     Route: 058
     Dates: start: 20190909, end: 20220525
  3. STELARA [Suspect]
     Active Substance: USTEKINUMAB
     Indication: Product used for unknown indication
     Route: 058
     Dates: start: 20230324, end: 20230731
  4. STELARA [Suspect]
     Active Substance: USTEKINUMAB
     Route: 058
     Dates: start: 20230731
  5. STELARA [Suspect]
     Active Substance: USTEKINUMAB
     Route: 058
     Dates: start: 20230127
  6. MESALAMINE [Concomitant]
     Active Substance: MESALAMINE
     Indication: Product used for unknown indication
     Dates: start: 20150324
  7. MESALAMINE [Concomitant]
     Active Substance: MESALAMINE
     Dates: start: 20181221
  8. PREDNISONE [Concomitant]
     Active Substance: PREDNISONE
     Indication: Product used for unknown indication
     Dates: start: 20220525, end: 20220621
  9. PREDNISONE [Concomitant]
     Active Substance: PREDNISONE
     Dates: start: 20221211, end: 20221211
  10. PREDNISONE [Concomitant]
     Active Substance: PREDNISONE
     Dates: start: 20200902, end: 20201015
  11. PREDNISONE [Concomitant]
     Active Substance: PREDNISONE
     Dates: start: 20220312, end: 20220501
  12. TOFACITINIB [Concomitant]
     Active Substance: TOFACITINIB
     Indication: Product used for unknown indication
     Dates: start: 20220606, end: 20230124
  13. BUDESONIDE [Concomitant]
     Active Substance: BUDESONIDE
     Indication: Product used for unknown indication
     Dates: start: 20221213, end: 20221226

REACTIONS (1)
  - Malignant melanoma stage 0 [Recovered/Resolved]

NARRATIVE: CASE EVENT DATE: 20230608
